FAERS Safety Report 6151297-1 (Version None)
Quarter: 2009Q2

REPORT INFORMATION
  Report Type: 
  Country: None (occurrence: None)
  Receive Date: 20090410
  Receipt Date: 20090406
  Transmission Date: 20091009
  Serious: Yes (Hospitalization)
  Sender: FDA-Public Use
  Company Number: PHHO2009CZ01336

PATIENT
  Sex: Female
  Weight: 68 kg

DRUGS (5)
  1. BLINDED NO TREATMENT RECEIVED NOMED [Suspect]
     Indication: CARCINOID TUMOUR
     Dosage: 2 DF, QD
     Route: 048
     Dates: start: 20070618, end: 20090106
  2. BLINDED PLACEBO COMP-PLA+ [Suspect]
     Indication: CARCINOID TUMOUR
     Dosage: 2 DF, QD
     Route: 048
     Dates: start: 20070618, end: 20090106
  3. BLINDED RAD 666 RAD+TAB [Suspect]
     Indication: CARCINOID TUMOUR
     Dosage: 2 DF, QD
     Route: 048
     Dates: start: 20070618, end: 20090106
  4. SANDOSTATIN LAR [Suspect]
     Indication: CARCINOID TUMOUR
     Dosage: UNK
     Route: 030
     Dates: start: 20070618, end: 20090116
  5. LOZAP [Concomitant]
     Indication: HYPERTENSION
     Dosage: 5 MG, QD
     Route: 048
     Dates: start: 20071106

REACTIONS (4)
  - DEHYDRATION [None]
  - DYSPEPSIA [None]
  - INFLUENZA [None]
  - PYREXIA [None]
